FAERS Safety Report 14840318 (Version 2)
Quarter: 2018Q3

REPORT INFORMATION
  Report Type: Spontaneous
  Country: DE (occurrence: DE)
  Receive Date: 20180503
  Receipt Date: 20180821
  Transmission Date: 20181010
  Serious: Yes (Hospitalization)
  Sender: FDA-Public Use
  Company Number: DE-ORION CORPORATION ORION PHARMA-18_00003472

PATIENT
  Age: 80 Year
  Sex: Male

DRUGS (13)
  1. PANTOPRAZOL [Concomitant]
     Active Substance: PANTOPRAZOLE SODIUM
     Dosage: 1?0?0?0
     Route: 065
  2. DIMENHYDRINAT [Concomitant]
     Active Substance: DIMENHYDRINATE
     Dosage: 1?0?0?0
     Route: 065
  3. ACETYLSALICYLIC ACID [Concomitant]
     Active Substance: ASPIRIN
     Dosage: 0?1?0?0
     Route: 065
  4. CINNARIZIN [Concomitant]
     Dosage: 1?0?0?0
     Route: 065
  5. RASAGILINE. [Suspect]
     Active Substance: RASAGILINE
     Indication: PRODUCT USED FOR UNKNOWN INDICATION
     Dosage: 1?0?0?0
     Route: 065
  6. ROTIGOTINE [Suspect]
     Active Substance: ROTIGOTINE
     Indication: PRODUCT USED FOR UNKNOWN INDICATION
     Dosage: 1?0?0?0
     Route: 062
  7. NACOM RETARD [Suspect]
     Active Substance: CARBIDOPA\LEVODOPA
     Indication: PRODUCT USED FOR UNKNOWN INDICATION
     Dosage: 0?0?0?1; STRENGTH: 200/50 MG
     Route: 065
  8. MOLSIDOMIN [Suspect]
     Active Substance: MOLSIDOMINE
     Indication: PRODUCT USED FOR UNKNOWN INDICATION
     Dosage: 0?0?1?0
     Route: 065
  9. SIMVASTATIN. [Concomitant]
     Active Substance: SIMVASTATIN
     Dosage: 0?0?1?0
     Route: 065
  10. REPAGLINIDE. [Concomitant]
     Active Substance: REPAGLINIDE
     Dosage: 1?1?1?0
     Route: 065
  11. STALEVO [Suspect]
     Active Substance: CARBIDOPA\ENTACAPONE\LEVODOPA
     Indication: PRODUCT USED FOR UNKNOWN INDICATION
     Dosage: 1?1?1?1; STRENGTH: 100/25/200 MG
     Route: 065
  12. MADOPAR LT [Suspect]
     Active Substance: BENSERAZIDE HYDROCHLORIDE\LEVODOPA
     Indication: PRODUCT USED FOR UNKNOWN INDICATION
     Dosage: STRENGTH: 100/25 MG, 1?0?0?0
     Route: 065
  13. COLECALCIFEROL [Concomitant]
     Active Substance: CHOLECALCIFEROL
     Dosage: 1?0?0?0
     Route: 065

REACTIONS (2)
  - Loss of consciousness [Unknown]
  - Dysarthria [Unknown]
